FAERS Safety Report 6463168-1 (Version None)
Quarter: 2009Q4

REPORT INFORMATION
  Report Type: 
  Country: None (occurrence: None)
  Receive Date: 20091123
  Receipt Date: 20091112
  Transmission Date: 20100525
  Serious: Yes (Death)
  Sender: FDA-Public Use
  Company Number: 90990

PATIENT
  Age: 25 Year
  Sex: Female
  Weight: 57.6068 kg

DRUGS (7)
  1. SUMATRIPTAN SUCCINATE [Suspect]
     Indication: CLUSTER HEADACHE
     Dosage: 6 MG SUBCUTANEOUS
     Route: 058
     Dates: start: 20091112
  2. MORPHINE [Concomitant]
  3. TORADOL [Concomitant]
  4. MEFOXIN [Concomitant]
  5. ATIVAN [Concomitant]
  6. ACETAMINOPHEN [Concomitant]
  7. PERCOCET [Concomitant]

REACTIONS (2)
  - CARDIO-RESPIRATORY ARREST [None]
  - INJECTION SITE ERYTHEMA [None]
